FAERS Safety Report 5673330-3 (Version None)
Quarter: 2008Q1

REPORT INFORMATION
  Report Type: 
  Country: None (occurrence: None)
  Receive Date: 20080317
  Receipt Date: 20080304
  Transmission Date: 20080703
  Serious: Yes (Other)
  Sender: FDA-Public Use
  Company Number: 2008-GWCA-014

PATIENT

DRUGS (1)
  1. ALDARA [Suspect]
     Indication: BASAL CELL CARCINOMA
     Dosage: APPLICATION - 5 TIMES WEEKLY - TOPICAL
     Route: 061

REACTIONS (3)
  - DEPRESSION [None]
  - SKIN DISCOLOURATION [None]
  - SUICIDAL IDEATION [None]
